FAERS Safety Report 9609008 (Version 2)
Quarter: 2013Q4

REPORT INFORMATION
  Report Type: Spontaneous
  Country: US (occurrence: US)
  Receive Date: 20131009
  Receipt Date: 20131107
  Transmission Date: 20140711
  Serious: Yes (Hospitalization, Other)
  Sender: FDA-Public Use
  Company Number: US-ELI_LILLY_AND_COMPANY-US201309010273

PATIENT
  Age: 0 Day
  Sex: 0

DRUGS (10)
  1. INSULIN HUMAN [Suspect]
     Indication: TYPE 1 DIABETES MELLITUS
     Dosage: UNK UNK, QD
     Route: 065
     Dates: start: 1968, end: 1995
  2. INSULIN HUMAN [Suspect]
     Indication: TYPE 1 DIABETES MELLITUS
     Dosage: UNK UNK, QD
     Route: 065
     Dates: start: 1968, end: 1995
  3. LISINOPRIL [Concomitant]
  4. LISINOPRIL [Concomitant]
  5. CALCIUM [Concomitant]
  6. CALCIUM [Concomitant]
  7. ACTONEL [Concomitant]
  8. ACTONEL [Concomitant]
  9. SYNTHROID [Concomitant]
  10. SYNTHROID [Concomitant]

REACTIONS (4)
  - Premature delivery [Recovered/Resolved]
  - Respiratory disorder neonatal [Unknown]
  - Blood glucose decreased [Unknown]
  - Foetal exposure during pregnancy [Recovered/Resolved]
